FAERS Safety Report 18275185 (Version 4)
Quarter: 2021Q1

REPORT INFORMATION
  Report Type: Report from Study
  Country: US (occurrence: US)
  Receive Date: 20200916
  Receipt Date: 20210112
  Transmission Date: 20210419
  Serious: No
  Sender: FDA-Public Use
  Company Number: NVSC2020US250868

PATIENT
  Sex: Female

DRUGS (1)
  1. COSENTYX [Suspect]
     Active Substance: SECUKINUMAB
     Indication: PRODUCT USED FOR UNKNOWN INDICATION
     Dosage: UNK
     Route: 065

REACTIONS (7)
  - Skin plaque [Unknown]
  - Arthralgia [Unknown]
  - Oropharyngeal pain [Unknown]
  - Skin disorder [Unknown]
  - Dysphonia [Unknown]
  - Product dose omission issue [Unknown]
  - Pain [Unknown]
